FAERS Safety Report 14608677 (Version 1)
Quarter: 2018Q1

REPORT INFORMATION
  Report Type: Spontaneous
  Country: BE (occurrence: BE)
  Receive Date: 20180307
  Receipt Date: 20180307
  Transmission Date: 20180509
  Serious: Yes (Hospitalization)
  Sender: FDA-Public Use
  Company Number: BE-TEVA-2018-BE-863848

PATIENT
  Sex: Female

DRUGS (1)
  1. MOXIFLOXACIN. [Suspect]
     Active Substance: MOXIFLOXACIN
     Dosage: A PILL THE PREVIOUS DAY AND A PILL IN THE MORNING
     Dates: start: 2016

REACTIONS (2)
  - Paralysis [Unknown]
  - Asthenia [Unknown]
